FAERS Safety Report 6100974-7 (Version None)
Quarter: 2009Q1

REPORT INFORMATION
  Report Type: 
  Country: None (occurrence: None)
  Receive Date: 20090227
  Receipt Date: 20090204
  Transmission Date: 20090719
  Serious: Yes (Death, Hospitalization)
  Sender: FDA-Public Use
  Company Number: 2009US000273

PATIENT
  Age: 45 Year
  Sex: Male

DRUGS (12)
  1. ALEFACEPT(ALEFACEPT) INJECTION [Suspect]
     Indication: RENAL TRANSPLANT
     Dosage: 30 MG, OTHER, SUBCUTANEOUS
     Route: 058
     Dates: start: 20081018, end: 20081026
  2. PROGRAF [Suspect]
     Indication: RENAL TRANSPLANT
     Dosage: ORAL
     Route: 048
     Dates: start: 20081019, end: 20090201
  3. PREDNISONE TAB [Concomitant]
  4. MYFORTIC [Concomitant]
  5. ZANTAC [Concomitant]
  6. ASPIRIN [Concomitant]
  7. ZOCOR [Concomitant]
  8. ALLOPURINOL [Concomitant]
  9. LABETALOL HCL [Concomitant]
  10. PLAVIX [Concomitant]
  11. SEPTRA [Concomitant]
  12. SODIUM BICARBONATE IN PLASTIC CONTAINER [Concomitant]

REACTIONS (11)
  - ABDOMINAL ABSCESS [None]
  - EPSTEIN-BARR VIRUS ASSOCIATED LYMPHOPROLIFERATIVE DISORDER [None]
  - KIDNEY SMALL [None]
  - MALIGNANT ASCITES [None]
  - METASTASES TO BONE [None]
  - METASTASES TO LIVER [None]
  - METASTASES TO LUNG [None]
  - PERITONEAL NEOPLASM [None]
  - RENAL ATROPHY [None]
  - RETROPERITONEAL HAEMATOMA [None]
  - SMALL INTESTINAL OBSTRUCTION [None]
